FAERS Safety Report 10305610 (Version 1)
Quarter: 2014Q3

REPORT INFORMATION
  Report Type: Spontaneous
  Country: US (occurrence: None)
  Receive Date: 20140714
  Receipt Date: 20140714
  Transmission Date: 20150326
  Serious: Yes (Hospitalization)
  Sender: FDA-Public Use
  Company Number: None

PATIENT
  Age: 78 Year
  Sex: Male
  Weight: 92.99 kg

DRUGS (8)
  1. DIPRIVAN [Suspect]
     Active Substance: PROPOFOL
     Indication: SEDATION
     Dosage: TITRATED, PRN/AS NEEDED, INTRAVENOUS
     Route: 042
  2. BETIMOL [Concomitant]
     Active Substance: TIMOLOL
  3. FUROSEMIDE. [Concomitant]
     Active Substance: FUROSEMIDE
  4. DIPRIVAN [Suspect]
     Active Substance: PROPOFOL
     Indication: ENDOSCOPY
     Dosage: TITRATED, PRN/AS NEEDED, INTRAVENOUS
     Route: 042
  5. POTASSIUM CHLORIDE. [Concomitant]
     Active Substance: POTASSIUM CHLORIDE
  6. MVI [Concomitant]
     Active Substance: VITAMINS
  7. OXYGEN. [Concomitant]
     Active Substance: OXYGEN
  8. TIROSINT [Concomitant]
     Active Substance: LEVOTHYROXINE SODIUM

REACTIONS (2)
  - Tachycardia [None]
  - Pyrexia [None]

NARRATIVE: CASE EVENT DATE: 20140707
